FAERS Safety Report 19627977 (Version 1)
Quarter: 2021Q3

REPORT INFORMATION
  Report Type: Spontaneous
  Country: FR (occurrence: FR)
  Receive Date: 20210728
  Receipt Date: 20210728
  Transmission Date: 20211014
  Serious: Yes (Hospitalization)
  Sender: FDA-Public Use
  Company Number: FR-ANIPHARMA-2021-FR-000159

PATIENT
  Age: 91 Year
  Sex: Male
  Weight: 84 kg

DRUGS (4)
  1. COMIRNATY [Suspect]
     Active Substance: TOZINAMERAN
     Dosage: 1 DF ONCE
     Route: 030
     Dates: start: 20210408, end: 20210408
  2. CANDESARTAN CILEXETIL. [Suspect]
     Active Substance: CANDESARTAN CILEXETIL
     Indication: HYPERTENSION
     Dosage: 16 MG UNK
     Route: 048
  3. LERCANIDIPINE HYDROCHLORIDE [Suspect]
     Active Substance: LERCANIDIPINE HYDROCHLORIDE
     Dosage: 20 MG UNK
     Route: 048
  4. XATRAL [Suspect]
     Active Substance: ALFUZOSIN
     Dosage: 5 MG UNK
     Route: 048

REACTIONS (1)
  - Loss of consciousness [Recovered/Resolved]

NARRATIVE: CASE EVENT DATE: 20210603
